FAERS Safety Report 7856316-X (Version None)
Quarter: 2011Q4

REPORT INFORMATION
  Report Type: 
  Country: None (occurrence: None)
  Receive Date: 20111026
  Receipt Date: 20111007
  Transmission Date: 20120403
  Serious: Yes (Hospitalization)
  Sender: FDA-Public Use
  Company Number: PHHY2011DE89846

PATIENT
  Age: 23 Year
  Sex: Female
  Weight: 68 kg

DRUGS (6)
  1. CYCLOSPORINE [Suspect]
     Indication: GLOMERULONEPHRITIS MEMBRANOUS
     Dosage: 150 MG, BID
     Route: 048
     Dates: start: 20091031, end: 20110131
  2. ENOXAPARIN SODIUM [Concomitant]
     Dosage: 140 MG, QD
     Route: 058
     Dates: start: 20110114, end: 20110131
  3. FALITHROM [Suspect]
     Indication: PULMONARY EMBOLISM
     Dosage: 3 MG, BID
     Route: 048
     Dates: start: 20091031, end: 20110113
  4. TORSEMIDE [Suspect]
     Indication: GLOMERULONEPHRITIS MEMBRANOUS
     Dosage: 10 MG, QD
     Route: 048
     Dates: start: 20101031, end: 20110126
  5. RAMIPRIL [Suspect]
     Indication: GLOMERULONEPHRITIS MEMBRANOUS
     Dosage: 5 MG, QD
     Route: 048
     Dates: start: 20101031, end: 20110126
  6. PREDNISOLONE [Concomitant]
     Indication: SYSTEMIC LUPUS ERYTHEMATOSUS
     Dosage: 7.5 MG, QD
     Dates: start: 20091031, end: 20110131

REACTIONS (2)
  - DEEP VEIN THROMBOSIS [None]
  - MATERNAL EXPOSURE DURING PREGNANCY [None]
